FAERS Safety Report 10205658 (Version 2)
Quarter: 2014Q3

REPORT INFORMATION
  Report Type: Spontaneous
  Country: IT (occurrence: IT)
  Receive Date: 20140529
  Receipt Date: 20140820
  Transmission Date: 20150326
  Serious: Yes (Other)
  Sender: FDA-Public Use
  Company Number: PHHY2014IT062086

PATIENT
  Age: 74 Year
  Sex: Male

DRUGS (1)
  1. LEVOFLOXACIN SANDOZ [Suspect]
     Active Substance: LEVOFLOXACIN
     Dosage: 500 MG, QD

REACTIONS (3)
  - Hallucination [Unknown]
  - Aggression [Unknown]
  - Screaming [Unknown]
